FAERS Safety Report 25524680 (Version 2)
Quarter: 2025Q3

REPORT INFORMATION
  Report Type: Spontaneous
  Country: EU (occurrence: EU)
  Receive Date: 20250707
  Receipt Date: 20250708
  Transmission Date: 20251020
  Serious: Yes (Hospitalization, Other)
  Sender: PFIZER
  Company Number: EU-PFIZER INC-PV202500079279

PATIENT
  Age: 81 Year
  Sex: Female

DRUGS (4)
  1. ENCORAFENIB [Suspect]
     Active Substance: ENCORAFENIB
     Indication: Metastatic malignant melanoma
     Dosage: 300 MG, 1X/DAY
     Route: 048
  2. ENCORAFENIB [Suspect]
     Active Substance: ENCORAFENIB
     Indication: BRAF gene mutation
  3. BINIMETINIB [Suspect]
     Active Substance: BINIMETINIB
     Indication: Metastatic malignant melanoma
     Dosage: 45 MG, 2X/DAY
     Route: 048
  4. BINIMETINIB [Suspect]
     Active Substance: BINIMETINIB
     Indication: BRAF gene mutation

REACTIONS (1)
  - Vogt-Koyanagi-Harada disease [Not Recovered/Not Resolved]
